FAERS Safety Report 6915615-6 (Version None)
Quarter: 2010Q3

REPORT INFORMATION
  Report Type: 
  Country: None (occurrence: None)
  Receive Date: 20100809
  Receipt Date: 20100804
  Transmission Date: 20110219
  Serious: Yes (Hospitalization)
  Sender: FDA-Public Use
  Company Number: AU-BRISTOL-MYERS SQUIBB COMPANY-14740419

PATIENT
  Age: 76 Year
  Sex: Male
  Weight: 66 kg

DRUGS (13)
  1. BLINDED: BRIVANIB ALANINATE [Suspect]
     Indication: COLORECTAL CANCER METASTATIC
     Dosage: INTERRUPTED ON 10AUG09
     Route: 048
     Dates: start: 20090805
  2. CETUXIMAB [Suspect]
     Indication: COLORECTAL CANCER METASTATIC
     Dosage: THERAPY DATES:11SEP09. INTERUPTED ON 14SEP09,25SEP09
     Route: 042
     Dates: start: 20090805
  3. BLINDED: PLACEBO [Suspect]
     Indication: COLORECTAL CANCER METASTATIC
     Route: 048
     Dates: start: 20090805
  4. CARTIA XT [Concomitant]
     Indication: PROPHYLAXIS
     Dates: start: 20071222
  5. PERINDOPRIL ERBUMINE [Concomitant]
     Indication: HYPERTENSION
     Dates: start: 20090210
  6. METFORMIN HCL [Concomitant]
     Indication: TYPE 2 DIABETES MELLITUS
     Dates: start: 20080617
  7. PULMICORT [Concomitant]
     Indication: ASTHMA
     Route: 055
     Dates: start: 20090210
  8. PULMICORT [Concomitant]
     Route: 055
     Dates: start: 20090101
  9. ATENOLOL [Concomitant]
     Indication: HYPERTENSION
     Dates: start: 20090101
  10. SOMAC [Concomitant]
     Indication: PROPHYLAXIS
     Dates: start: 20090101
  11. NULYTELY [Concomitant]
     Indication: PROPHYLAXIS
     Dates: start: 20090101
  12. CLEXANE [Concomitant]
     Dates: start: 20090101
  13. OXYCONTIN [Concomitant]
     Dates: start: 20090731

REACTIONS (5)
  - CONFUSIONAL STATE [None]
  - DIARRHOEA [None]
  - FATIGUE [None]
  - HYPONATRAEMIA [None]
  - VOMITING [None]
